FAERS Safety Report 8117812-3 (Version None)
Quarter: 2012Q1

REPORT INFORMATION
  Report Type: 
  Country: None (occurrence: None)
  Receive Date: 20120207
  Receipt Date: 20120128
  Transmission Date: 20120608
  Serious: Yes (Hospitalization, Other)
  Sender: FDA-Public Use
  Company Number: JP-VERTEX PHARMACEUTICALS INC.-AE-2012-001521

PATIENT
  Age: 55 Year
  Sex: Male

DRUGS (13)
  1. LIVALO [Concomitant]
     Route: 048
  2. SELBEX [Concomitant]
     Route: 048
     Dates: start: 20120120
  3. LOSARTAN POTASSIUM [Concomitant]
     Route: 048
  4. XYZAL [Concomitant]
     Route: 048
     Dates: start: 20120120
  5. KETOBUN [Concomitant]
     Route: 048
  6. TELAVIC (TELAPREVIR) [Suspect]
     Route: 048
     Dates: start: 20120111, end: 20120126
  7. REBETOL [Concomitant]
     Route: 048
     Dates: start: 20120111, end: 20120126
  8. JANUVIA [Concomitant]
     Route: 048
  9. AMOBAN [Concomitant]
     Route: 048
  10. DEPAS [Concomitant]
     Route: 048
  11. PEG-INTRON [Concomitant]
     Route: 058
     Dates: start: 20120111, end: 20120126
  12. XYZAL [Concomitant]
     Route: 048
     Dates: start: 20120120
  13. ALLOPURINOL [Concomitant]
     Route: 048
     Dates: start: 20120127

REACTIONS (5)
  - PYREXIA [None]
  - LEUKOPENIA [None]
  - ERYTHEMA [None]
  - NEUTROPHIL COUNT DECREASED [None]
  - PLATELET COUNT DECREASED [None]
